FAERS Safety Report 11361902 (Version 1)
Quarter: 2015Q3

REPORT INFORMATION
  Report Type: Report from Study
  Country: CA (occurrence: CA)
  Receive Date: 20150810
  Receipt Date: 20150810
  Transmission Date: 20151125
  Serious: Yes (Other)
  Sender: FDA-Public Use
  Company Number: CA-JNJFOC-20150801983

PATIENT
  Age: 46 Year
  Sex: Female

DRUGS (1)
  1. REMICADE [Suspect]
     Active Substance: INFLIXIMAB
     Indication: COLITIS ULCERATIVE
     Route: 042
     Dates: start: 20150202, end: 20150603

REACTIONS (7)
  - Fatigue [Unknown]
  - Large intestinal stenosis [Unknown]
  - Arthralgia [Unknown]
  - Myalgia [Unknown]
  - Anxiety [Unknown]
  - Stress [Unknown]
  - Dizziness [Unknown]

NARRATIVE: CASE EVENT DATE: 2015
